FAERS Safety Report 19670007 (Version 1)
Quarter: 2021Q3

REPORT INFORMATION
  Report Type: Spontaneous
  Country: NL (occurrence: NL)
  Receive Date: 20210806
  Receipt Date: 20210806
  Transmission Date: 20211014
  Serious: Yes (Hospitalization, Other)
  Sender: FDA-Public Use
  Company Number: NL-ASTRAZENECA-2021A655221

PATIENT
  Age: 18 Year
  Sex: Female
  Weight: 50 kg

DRUGS (2)
  1. CLOMIPRAMINE [Suspect]
     Active Substance: CLOMIPRAMINE
     Indication: DEPRESSION
     Dosage: 50 TABLETS OF SLOW?RELEASE CLOMIPRAMINE 75 MG (3.75 G TOTAL)
     Route: 048
  2. QUETIAPINE. [Suspect]
     Active Substance: QUETIAPINE
     Indication: DEPRESSION
     Dosage: 100 TABLETS OF SLOW?RELEASE QUETIAPINE 25 MG (2.5 G TOTAL).
     Route: 048

REACTIONS (5)
  - Bezoar [Recovered/Resolved]
  - Overdose [Unknown]
  - Hyporesponsive to stimuli [Unknown]
  - Supraventricular tachycardia [Unknown]
  - Altered state of consciousness [Recovered/Resolved]
